FAERS Safety Report 16855283 (Version 1)
Quarter: 2019Q3

REPORT INFORMATION
  Report Type: Spontaneous
  Country: DE (occurrence: DE)
  Receive Date: 20190926
  Receipt Date: 20190926
  Transmission Date: 20191005
  Serious: Yes (Other)
  Sender: FDA-Public Use
  Company Number: DE-ROCHE-2413962

PATIENT
  Age: 52 Year
  Sex: Male

DRUGS (5)
  1. NIVOLUMAB [Suspect]
     Active Substance: NIVOLUMAB
     Indication: TUMOUR ULCERATION
     Route: 065
     Dates: start: 201709
  2. IPILIMUMAB [Suspect]
     Active Substance: IPILIMUMAB
     Indication: TUMOUR ULCERATION
     Route: 065
     Dates: start: 201709
  3. NIVOLUMAB [Suspect]
     Active Substance: NIVOLUMAB
     Route: 065
     Dates: start: 20171130
  4. COBIMETINIB. [Suspect]
     Active Substance: COBIMETINIB
     Indication: TUMOUR ULCERATION
     Route: 065
     Dates: start: 20170301, end: 201708
  5. VEMURAFENIB. [Suspect]
     Active Substance: VEMURAFENIB
     Indication: TUMOUR ULCERATION
     Route: 065
     Dates: start: 20170301, end: 201708

REACTIONS (7)
  - Autoimmune colitis [Unknown]
  - Hyperthyroidism [Unknown]
  - Skin burning sensation [Unknown]
  - Rash [Unknown]
  - Diarrhoea [Unknown]
  - Weight decreased [Unknown]
  - Fatigue [Unknown]

NARRATIVE: CASE EVENT DATE: 201709
